FAERS Safety Report 8277553-9 (Version None)
Quarter: 2012Q2

REPORT INFORMATION
  Report Type: 
  Country: None (occurrence: None)
  Receive Date: 20120412
  Receipt Date: 20120405
  Transmission Date: 20120825
  Serious: Yes (Hospitalization, Other)
  Sender: FDA-Public Use
  Company Number: JP-B.I. PHARMACEUTICALS,INC./RIDGEFIELD-2012-BP-05845NB

PATIENT
  Age: 78 Year
  Sex: Male

DRUGS (4)
  1. VERAPAMIL HCL [Suspect]
     Route: 065
     Dates: end: 20120327
  2. ACTOS [Suspect]
     Route: 065
     Dates: end: 20120327
  3. PRADAXA [Suspect]
     Indication: ATRIAL FIBRILLATION
     Dosage: 220 MG
     Route: 048
     Dates: start: 20120101, end: 20120327
  4. DIGOXIN [Suspect]
     Route: 065
     Dates: end: 20120327

REACTIONS (4)
  - GENERALISED OEDEMA [None]
  - HYPOPROTEINAEMIA [None]
  - ANAEMIA [None]
  - CARDIAC FAILURE [None]
